FAERS Safety Report 7814410-3 (Version None)
Quarter: 2011Q4

REPORT INFORMATION
  Report Type: 
  Country: None (occurrence: None)
  Receive Date: 20111014
  Receipt Date: 20111004
  Transmission Date: 20120403
  Serious: Yes (Other)
  Sender: FDA-Public Use
  Company Number: PHHY2011JP88234

PATIENT
  Sex: Female
  Weight: 40 kg

DRUGS (8)
  1. LASIX [Concomitant]
     Dosage: 20 MG, DAILY
     Route: 048
     Dates: start: 20090928
  2. CAMOSTAT MESILATE [Concomitant]
     Dosage: 600 MG, DAILY
     Route: 048
     Dates: start: 20090928
  3. URSO 250 [Concomitant]
     Dosage: 600 MG, DAILY
     Route: 048
     Dates: start: 20090928
  4. GLYCYRON [Concomitant]
     Dosage: 6 DF, DAILY
     Route: 048
     Dates: start: 20090928
  5. LANSOPRAZOLE [Concomitant]
     Dosage: 15 MG, DAILY
     Route: 048
     Dates: start: 20090928
  6. TASIGNA [Suspect]
     Indication: CHRONIC MYELOID LEUKAEMIA
     Dosage: 400 MG, DAILY
     Route: 048
     Dates: start: 20090928
  7. ALLOPURINOL [Concomitant]
     Dosage: 100 MG, DAILY
     Route: 048
     Dates: start: 20090928
  8. DEPAKENE [Concomitant]
     Dosage: 400 MG, DAILY
     Route: 048
     Dates: start: 20090928

REACTIONS (2)
  - WEIGHT INCREASED [None]
  - LIPASE INCREASED [None]
